FAERS Safety Report 21792710 (Version 2)
Quarter: 2023Q1

REPORT INFORMATION
  Report Type: Spontaneous
  Country: US (occurrence: US)
  Receive Date: 20221229
  Receipt Date: 20230110
  Transmission Date: 20230418
  Serious: Yes (Other)
  Sender: FDA-Public Use
  Company Number: US-TEVA-2022-US-2839610

PATIENT
  Age: 3 Decade
  Sex: Female

DRUGS (3)
  1. PREDNISONE [Suspect]
     Active Substance: PREDNISONE
     Indication: Organising pneumonia
     Dosage: 60 MILLIGRAM DAILY;
     Route: 065
  2. CLARITHROMYCIN [Concomitant]
     Active Substance: CLARITHROMYCIN
     Indication: Organising pneumonia
     Dosage: 500 MILLIGRAM DAILY; RECEIVED FOR SEVERAL MONTHS
     Route: 065
  3. MYCOPHENOLIC ACID [Concomitant]
     Active Substance: MYCOPHENOLIC ACID
     Indication: Organising pneumonia
     Dosage: 2 GRAM DAILY;
     Route: 065

REACTIONS (4)
  - Toxicity to various agents [Unknown]
  - Diabetes mellitus [Unknown]
  - Weight increased [Unknown]
  - Non-alcoholic fatty liver [Unknown]
